FAERS Safety Report 6125052-2 (Version None)
Quarter: 2009Q1

REPORT INFORMATION
  Report Type: 
  Country: None (occurrence: None)
  Receive Date: 20090318
  Receipt Date: 20090309
  Transmission Date: 20090719
  Serious: Yes (Other)
  Sender: FDA-Public Use
  Company Number: SPV1-2009-00391

PATIENT
  Age: 9 Year
  Sex: Male
  Weight: 22.7 kg

DRUGS (1)
  1. VYVANSE [Suspect]
     Indication: ATTENTION DEFICIT/HYPERACTIVITY DISORDER
     Dosage: 30 MG, 1X/DAY; QD, ORAL
     Route: 048
     Dates: start: 20080901, end: 20090201

REACTIONS (7)
  - AGGRESSION [None]
  - ANGER [None]
  - CRYING [None]
  - FRUSTRATION [None]
  - IRRITABILITY [None]
  - SUICIDAL IDEATION [None]
  - VERBAL ABUSE [None]
